FAERS Safety Report 8518702-4 (Version None)
Quarter: 2012Q3

REPORT INFORMATION
  Report Type: 
  Country: None (occurrence: None)
  Receive Date: 20120718
  Receipt Date: 20110727
  Transmission Date: 20120928
  Serious: Yes (Other)
  Sender: FDA-Public Use
  Company Number: US-BRISTOL-MYERS SQUIBB COMPANY-15830235

PATIENT
  Age: 79 Year
  Sex: Female
  Weight: 41 kg

DRUGS (1)
  1. COUMADIN [Suspect]
     Dosage: DOSE INCREASED TO 5MG FOR 7 DAYS, THEN 7.5MG AND TO 10MG.NDC NO-0056-0172-70.
     Dates: start: 20080101

REACTIONS (2)
  - INTERNATIONAL NORMALISED RATIO DECREASED [None]
  - DRUG INEFFECTIVE [None]
